FAERS Safety Report 22605214 (Version 2)
Quarter: 2024Q2

REPORT INFORMATION
  Report Type: Spontaneous
  Country: US (occurrence: US)
  Receive Date: 20230615
  Receipt Date: 20240605
  Transmission Date: 20240716
  Serious: No
  Sender: FDA-Public Use
  Company Number: US-ARBOR PHARMACEUTICALS, LLC-US-2023ARB000024

PATIENT
  Age: 34 Year
  Sex: Female

DRUGS (2)
  1. TESTOSTERONE CYPIONATE [Suspect]
     Active Substance: TESTOSTERONE CYPIONATE
     Indication: Hormone replacement therapy
     Dosage: 0.25 ML (2 DOSES)
     Route: 030
     Dates: start: 20221031, end: 20230104
  2. PROGESTERONE [Concomitant]
     Active Substance: PROGESTERONE
     Indication: Product used for unknown indication
     Dosage: UNK

REACTIONS (2)
  - Multiple use of single-use product [Unknown]
  - Product packaging quantity issue [Unknown]

NARRATIVE: CASE EVENT DATE: 20230104
